FAERS Safety Report 7691748-4 (Version None)
Quarter: 2011Q3

REPORT INFORMATION
  Report Type: 
  Country: None (occurrence: None)
  Receive Date: 20110818
  Receipt Date: 20110810
  Transmission Date: 20111222
  Serious: Yes (Hospitalization)
  Sender: FDA-Public Use
  Company Number: FR-GLAXOSMITHKLINE-B0732265A

PATIENT
  Age: 60 Year
  Sex: Female

DRUGS (2)
  1. REQUIP [Suspect]
     Indication: PARKINSON'S DISEASE
     Route: 048
     Dates: start: 20100901, end: 20110421
  2. MODOPAR [Concomitant]
     Indication: PARKINSON'S DISEASE
     Dosage: 125MG TWICE PER DAY
     Route: 048
     Dates: start: 20100501, end: 20110501

REACTIONS (4)
  - AGITATION [None]
  - HYPOMANIA [None]
  - OBSESSIVE-COMPULSIVE DISORDER [None]
  - PERSECUTORY DELUSION [None]
